FAERS Safety Report 9053951 (Version 1)
Quarter: 2013Q1

REPORT INFORMATION
  Report Type: Spontaneous
  Country: US (occurrence: US)
  Receive Date: 20130208
  Receipt Date: 20130208
  Transmission Date: 20140127
  Serious: Yes (Hospitalization)
  Sender: FDA-Public Use
  Company Number: PHEH2013US003137

PATIENT
  Sex: 0

DRUGS (1)
  1. CLOZARIL [Suspect]

REACTIONS (1)
  - Drug abuse [Unknown]
